FAERS Safety Report 6556428-7 (Version None)
Quarter: 2010Q1

REPORT INFORMATION
  Report Type: 
  Country: None (occurrence: None)
  Receive Date: 20100128
  Receipt Date: 20100118
  Transmission Date: 20100710
  Serious: Yes (Other)
  Sender: FDA-Public Use
  Company Number: B0624251A

PATIENT
  Age: 30 Year
  Sex: Female

DRUGS (2)
  1. VALTREX [Suspect]
     Dosage: 500MG SIX TIMES PER DAY
     Route: 065
     Dates: start: 20091120, end: 20091127
  2. TRADOL [Concomitant]
     Indication: PAIN
     Dosage: 50MG THREE TIMES PER DAY
     Dates: start: 20091120, end: 20091127

REACTIONS (3)
  - DERMATITIS [None]
  - PRURITUS [None]
  - RASH GENERALISED [None]
